FAERS Safety Report 10698453 (Version 7)
Quarter: 2017Q1

REPORT INFORMATION
  Report Type: Spontaneous
  Country: US (occurrence: US)
  Receive Date: 20140924
  Receipt Date: 20170324
  Transmission Date: 20170428
  Serious: Yes (Hospitalization, Congenital Anomaly, Other)
  Sender: FDA-Public Use
  Company Number: US-APOTEX-2014AP003798

PATIENT
  Age: 0 Day
  Sex: Male

DRUGS (11)
  1. PAXIL [Suspect]
     Active Substance: PAROXETINE HYDROCHLORIDE
     Indication: GENERALISED ANXIETY DISORDER
     Dosage: 2 MG, QD
     Route: 064
  2. PAROXETINE HYDROCHLORIDE. [Suspect]
     Active Substance: PAROXETINE HYDROCHLORIDE
     Indication: PRODUCT USED FOR UNKNOWN INDICATION
     Dosage: 20 MG, UNK
     Route: 064
     Dates: start: 20030129, end: 20140608
  3. ASPIRIN. [Concomitant]
     Active Substance: ASPIRIN
     Indication: PRODUCT USED FOR UNKNOWN INDICATION
     Dosage: 81 MG, QD
     Route: 064
     Dates: start: 20040122
  4. PAXIL [Suspect]
     Active Substance: PAROXETINE HYDROCHLORIDE
     Dosage: 30 MG, QD
     Route: 064
  5. PROGESTERONE. [Concomitant]
     Active Substance: PROGESTERONE
     Indication: PRODUCT USED FOR UNKNOWN INDICATION
     Dosage: 50 MG, QD
  6. PAXIL [Suspect]
     Active Substance: PAROXETINE HYDROCHLORIDE
     Dosage: 10 MG, UNK
     Route: 064
  7. PAROXETINE HYDROCHLORIDE. [Suspect]
     Active Substance: PAROXETINE HYDROCHLORIDE
     Dosage: UNK
     Route: 064
  8. PAROXETINE HYDROCHLORIDE. [Suspect]
     Active Substance: PAROXETINE HYDROCHLORIDE
     Dosage: 20 MG, QD
     Route: 064
  9. PAXIL [Suspect]
     Active Substance: PAROXETINE HYDROCHLORIDE
     Indication: PANIC ATTACK
     Dosage: 20 MG, QD
     Route: 064
     Dates: start: 2001, end: 20141016
  10. ESTRADIOL VALERATE. [Concomitant]
     Active Substance: ESTRADIOL VALERATE
     Indication: PRODUCT USED FOR UNKNOWN INDICATION
     Dosage: 6 MG, B.I.WK.
     Route: 030
  11. DELESTROGEN [Concomitant]
     Active Substance: ESTRADIOL VALERATE
     Indication: PRODUCT USED FOR UNKNOWN INDICATION
     Dosage: 6 MG, B.I.WK.

REACTIONS (9)
  - Foetal exposure during pregnancy [Unknown]
  - Bronchogenic cyst [Unknown]
  - Talipes [Unknown]
  - Pleural effusion [Unknown]
  - Mediastinal mass [Unknown]
  - Congenital astigmatism [Unknown]
  - Congenital knee deformity [Unknown]
  - Strabismus [Unknown]
  - Plagiocephaly [Unknown]

NARRATIVE: CASE EVENT DATE: 20040630
